FAERS Safety Report 15113989 (Version 1)
Quarter: 2018Q3

REPORT INFORMATION
  Report Type: Spontaneous
  Country: FR (occurrence: FR)
  Receive Date: 20180706
  Receipt Date: 20180706
  Transmission Date: 20181010
  Serious: Yes (Other)
  Sender: FDA-Public Use
  Company Number: FR-ACCORD-069098

PATIENT
  Age: 75 Year
  Sex: Male
  Weight: 84 kg

DRUGS (12)
  1. KOMBOGLYZE [Concomitant]
     Active Substance: METFORMIN HYDROCHLORIDE\SAXAGLIPTIN
     Indication: DIABETES MELLITUS
     Dosage: LONG TREATMENT FOR MORE THAN 20 YEARS, 2 DF DAILY
  2. ATENOLOL/ATENOLOL HYDROCHLORIDE [Concomitant]
  3. SIMVASTATIN. [Concomitant]
     Active Substance: SIMVASTATIN
     Dosage: LONG COURSE TREATMENT FOR MORE THAN 20 YEARS
  4. AMLODIPINE [Concomitant]
     Active Substance: AMLODIPINE BESYLATE
     Dosage: LONG COURSE TREATMENT FOR MORE THAN 20 YEARS
  5. GEMCITABINE/GEMCITABINE HYDROCHLORIDE [Suspect]
     Active Substance: GEMCITABINE\GEMCITABINE HYDROCHLORIDE
     Indication: BLADDER CANCER
     Dosage: ONE COURSE ON 20, 21 AND 22?DEC?2017
     Dates: start: 20171101
  6. PREVISCAN (FLUINDIONE) [Concomitant]
     Active Substance: FLUINDIONE
     Dosage: REPLACED WITH INNOHEP IN MID DECEMBER 2017
     Dates: start: 201712, end: 201712
  7. METFORMIN [Concomitant]
     Active Substance: METFORMIN HYDROCHLORIDE
     Indication: DIABETES MELLITUS
     Dosage: UNK
  8. TOUJEO [Concomitant]
     Active Substance: INSULIN GLARGINE
     Indication: DIABETES MELLITUS
     Dates: start: 20171230
  9. NOVONORM [Concomitant]
     Active Substance: REPAGLINIDE
     Dosage: LONG TREATMENT FOR MORE THAN 20 YEARS, 3 DF DAILY
  10. INNOHEP [Concomitant]
     Active Substance: TINZAPARIN SODIUM
     Dates: start: 201712
  11. CISPLATIN TEVA [Suspect]
     Active Substance: CISPLATIN
     Indication: BLADDER CANCER
     Dosage: 20, 21 AND 22?DEC?2017
     Dates: start: 20171101
  12. INSULIN [Concomitant]
     Active Substance: INSULIN NOS
     Indication: DIABETES MELLITUS
     Dates: start: 20171230

REACTIONS (6)
  - Phlebitis [Not Recovered/Not Resolved]
  - Gait disturbance [Not Recovered/Not Resolved]
  - Pain [Not Recovered/Not Resolved]
  - General physical health deterioration [Not Recovered/Not Resolved]
  - Pain in extremity [Not Recovered/Not Resolved]
  - Peripheral swelling [Not Recovered/Not Resolved]

NARRATIVE: CASE EVENT DATE: 20171201
